FAERS Safety Report 12177912 (Version 4)
Quarter: 2016Q3

REPORT INFORMATION
  Report Type: Spontaneous
  Country: US (occurrence: US)
  Receive Date: 20160314
  Receipt Date: 20160803
  Transmission Date: 20161109
  Serious: Yes (Other)
  Sender: FDA-Public Use
  Company Number: US-TEVA-643121USA

PATIENT
  Age: 36 Year
  Sex: Female

DRUGS (1)
  1. ZECUITY [Suspect]
     Active Substance: SUMATRIPTAN SUCCINATE
     Indication: MIGRAINE
     Route: 062
     Dates: start: 20160301, end: 20160301

REACTIONS (13)
  - Application site pain [Recovered/Resolved]
  - Application site warmth [Recovered/Resolved]
  - Product leakage [Unknown]
  - Application site burn [Recovered/Resolved]
  - Chemical injury [Recovered/Resolved]
  - Nausea [Unknown]
  - Vomiting [Unknown]
  - Application site rash [Recovered/Resolved with Sequelae]
  - Adverse event [Unknown]
  - Migraine [Unknown]
  - Sunburn [Recovered/Resolved]
  - Application site urticaria [Recovered/Resolved]
  - Application site pruritus [Unknown]

NARRATIVE: CASE EVENT DATE: 20160301
